FAERS Safety Report 23291319 (Version 1)
Quarter: 2023Q4

REPORT INFORMATION
  Report Type: Spontaneous
  Country: SE (occurrence: SE)
  Receive Date: 20231213
  Receipt Date: 20231213
  Transmission Date: 20240110
  Serious: Yes (Hospitalization)
  Sender: FDA-Public Use
  Company Number: SE-MACLEODS PHARMACEUTICALS US LTD-MAC2023044719

PATIENT

DRUGS (3)
  1. LEVOTHYROXINE [Suspect]
     Active Substance: LEVOTHYROXINE
     Indication: Product used for unknown indication
     Dosage: 1.5 MILLIGRAM, SINGLE
     Route: 065
  2. APIXABAN [Suspect]
     Active Substance: APIXABAN
     Indication: Pulmonary embolism
     Dosage: 210 MILLIGRAM, SINGLE (2.8 MILLIGRAM/KILOGRAM)
     Route: 065
  3. AMITRIPTYLINE [Suspect]
     Active Substance: AMITRIPTYLINE
     Indication: Product used for unknown indication
     Dosage: 2.5 GRAM, SINGLE
     Route: 065

REACTIONS (5)
  - Unresponsive to stimuli [Unknown]
  - Anticholinergic syndrome [Unknown]
  - Haematuria [Unknown]
  - Gastrointestinal hypomotility [Unknown]
  - Intentional overdose [Unknown]
